FAERS Safety Report 5430030-2 (Version None)
Quarter: 2007Q3

REPORT INFORMATION
  Report Type: 
  Country: None (occurrence: None)
  Receive Date: 20070829
  Receipt Date: 20070817
  Transmission Date: 20080115
  Serious: Yes (Hospitalization, Other)
  Sender: FDA-Public Use
  Company Number: JP-PFIZER INC-2007067553

PATIENT
  Age: 50 Year
  Sex: Male

DRUGS (9)
  1. IDAMYCIN [Suspect]
     Indication: ACUTE MYELOID LEUKAEMIA
     Dosage: DAILY DOSE:18MG
     Route: 042
     Dates: start: 20070804, end: 20070806
  2. VFEND [Suspect]
     Indication: PROPHYLAXIS
     Dosage: DAILY DOSE:400MG
     Route: 048
     Dates: start: 20070807, end: 20070809
  3. MAXIPIME [Suspect]
     Indication: PROPHYLAXIS
     Dosage: DAILY DOSE:2GRAM
     Dates: start: 20070807, end: 20070815
  4. CYLOCIDE [Suspect]
     Indication: ACUTE MYELOID LEUKAEMIA
     Dosage: DAILY DOSE:150MG
     Dates: start: 20070803, end: 20070809
  5. POLYMYXIN B SULFATE [Concomitant]
     Route: 048
     Dates: start: 20070803, end: 20070809
  6. DIFLUCAN [Concomitant]
     Route: 048
     Dates: start: 20070803, end: 20070806
  7. ZANTAC 150 [Concomitant]
     Dates: start: 20070803, end: 20070803
  8. ISODINE [Concomitant]
  9. BIAPENEM [Concomitant]
     Dates: start: 20070804, end: 20070806

REACTIONS (1)
  - BLOOD BILIRUBIN INCREASED [None]
